FAERS Safety Report 11744203 (Version 1)
Quarter: 2015Q4

REPORT INFORMATION
  Report Type: Other
  Country: TR (occurrence: TR)
  Receive Date: 20151116
  Receipt Date: 20151116
  Transmission Date: 20160304
  Serious: Yes (Hospitalization)
  Sender: FDA-Public Use
  Company Number: TR-AAIPHARMA_SERVICES_CORP-USA-POI0581201500019

PATIENT
  Age: 52 Year
  Sex: Female

DRUGS (2)
  1. OZURDEX [Suspect]
     Active Substance: DEXAMETHASONE
     Indication: MACULAR OEDEMA
     Route: 031
  2. AZASAN [Suspect]
     Active Substance: AZATHIOPRINE
     Indication: CHORIORETINITIS

REACTIONS (4)
  - Necrotising retinitis [Recovered/Resolved with Sequelae]
  - Varicella zoster virus infection [None]
  - Vitreous floaters [None]
  - Retinal detachment [None]

NARRATIVE: CASE EVENT DATE: 201504
